FAERS Safety Report 8697312 (Version 2)
Quarter: 2012Q4

REPORT INFORMATION
  Report Type: 
  Country: US (occurrence: US)
  Receive Date: 20120801
  Receipt Date: 20121009
  Transmission Date: 20130627
  Serious: Yes (Death)
  Sender: FDA-Public Use
  Company Number: US-GLAXOSMITHKLINE-A0987789A

PATIENT
  Age: 59 Year
  Sex: Female

DRUGS (10)
  1. TYKERB [Suspect]
     Indication: BREAST CANCER
     Dosage: 250MG Per day
     Route: 048
     Dates: start: 20110502
  2. VALTREX [Concomitant]
  3. GLYBURIDE [Concomitant]
  4. AMERGE [Concomitant]
  5. HUMALOG [Concomitant]
  6. GLUCOPHAGE [Concomitant]
  7. LEVEMIR [Concomitant]
  8. VENLAFAXINE [Concomitant]
  9. CARISOPRODOL [Concomitant]
  10. KEPPRA [Concomitant]

REACTIONS (2)
  - Metastases to meninges [Fatal]
  - Disease progression [Fatal]
